FAERS Safety Report 12084771 (Version 2)
Quarter: 2016Q1

REPORT INFORMATION
  Report Type: Report from Study
  Country: US (occurrence: US)
  Receive Date: 20160217
  Receipt Date: 20160225
  Transmission Date: 20160526
  Serious: Yes (Hospitalization, Other)
  Sender: FDA-Public Use
  Company Number: US-GILEAD-2015-0186490

PATIENT
  Age: 50 Year
  Sex: Male

DRUGS (2)
  1. AZTREONAM LYSINE [Suspect]
     Active Substance: AZTREONAM LYSINE
     Indication: PSEUDOMONAS INFECTION
     Dosage: 75 MG, UNK
     Route: 055
     Dates: start: 20110711
  2. AZTREONAM LYSINE [Suspect]
     Active Substance: AZTREONAM LYSINE
     Indication: CYSTIC FIBROSIS LUNG
     Dosage: 75 MG, UNK
     Route: 055
     Dates: start: 20150618

REACTIONS (3)
  - Lung transplant [Recovering/Resolving]
  - Pulmonary function test decreased [Recovering/Resolving]
  - Cystic fibrosis [Recovering/Resolving]

NARRATIVE: CASE EVENT DATE: 20160101
